FAERS Safety Report 6842937-X (Version None)
Quarter: 2010Q3

REPORT INFORMATION
  Report Type: 
  Country: None (occurrence: None)
  Receive Date: 20100714
  Receipt Date: 20070906
  Transmission Date: 20110219
  Serious: No
  Sender: FDA-Public Use
  Company Number: US-PFIZER INC-2007066722

PATIENT
  Sex: Female
  Weight: 102.7 kg

DRUGS (2)
  1. CHANTIX [Suspect]
     Indication: SMOKING CESSATION THERAPY
     Dates: start: 20070729
  2. ACCUPRIL [Concomitant]
     Indication: HYPERTENSION

REACTIONS (3)
  - FATIGUE [None]
  - LAZINESS [None]
  - WEIGHT INCREASED [None]
